FAERS Safety Report 8996527 (Version 3)
Quarter: 2013Q1

REPORT INFORMATION
  Report Type: Spontaneous
  Country: US (occurrence: US)
  Receive Date: 20130104
  Receipt Date: 20130318
  Transmission Date: 20140127
  Serious: No
  Sender: FDA-Public Use
  Company Number: US-PFIZER INC-2013002464

PATIENT
  Age: 48 Year
  Sex: Male
  Weight: 109 kg

DRUGS (3)
  1. LYRICA [Suspect]
     Indication: NEUROPATHY PERIPHERAL
     Dosage: 50 MG, 3X/DAY
     Route: 048
     Dates: start: 201212, end: 201212
  2. LYRICA [Suspect]
     Dosage: UNK
     Route: 048
     Dates: start: 201212, end: 201301
  3. NEURONTIN [Suspect]
     Indication: NEUROPATHY PERIPHERAL
     Dosage: UNK

REACTIONS (10)
  - Intentional drug misuse [Unknown]
  - Migraine [Recovered/Resolved]
  - Balance disorder [Unknown]
  - Local swelling [Recovered/Resolved]
  - Dysuria [Recovered/Resolved]
  - Feeling abnormal [Unknown]
  - Dysstasia [Unknown]
  - Swelling [Unknown]
  - Coordination abnormal [Recovered/Resolved]
  - Dizziness [Recovered/Resolved]
